FAERS Safety Report 20125763 (Version 1)
Quarter: 2021Q4

REPORT INFORMATION
  Report Type: Spontaneous
  Country: TW (occurrence: TW)
  Receive Date: 20211129
  Receipt Date: 20211129
  Transmission Date: 20220303
  Serious: Yes (Death, Other)
  Sender: FDA-Public Use
  Company Number: TW-teijin-202103080_FE_P_1

PATIENT
  Age: 69 Year
  Sex: Female

DRUGS (6)
  1. LANSOPRAZOLE [Suspect]
     Active Substance: LANSOPRAZOLE
     Indication: Gastrooesophageal reflux disease
     Dosage: UNK
     Route: 065
  2. AMLODIPINE BESYLATE [Suspect]
     Active Substance: AMLODIPINE BESYLATE
     Indication: Hypertension
     Dosage: UNK
     Route: 065
  3. FEBUXOSTAT [Suspect]
     Active Substance: FEBUXOSTAT
     Indication: Hyperuricaemia
     Dosage: UNK
     Route: 065
  4. CEPHALEXIN [Suspect]
     Active Substance: CEPHALEXIN
     Indication: Breast cellulitis
     Dosage: UNK
     Route: 065
  5. HYDROXYCHLOROQUINE [Suspect]
     Active Substance: HYDROXYCHLOROQUINE
     Indication: Sjogren^s syndrome
     Dosage: UNK
     Route: 065
  6. PHENPROBAMATE [Suspect]
     Active Substance: PHENPROBAMATE
     Indication: Muscle tightness
     Dosage: UNK
     Route: 065

REACTIONS (5)
  - Hepatitis [Fatal]
  - Hepatic failure [Fatal]
  - Breast cellulitis [Unknown]
  - Gastrooesophageal reflux disease [Unknown]
  - Muscle tightness [Unknown]
